FAERS Safety Report 10559204 (Version 1)
Quarter: 2014Q4

REPORT INFORMATION
  Report Type: Spontaneous
  Country: CN (occurrence: CN)
  Receive Date: 20141103
  Receipt Date: 20141103
  Transmission Date: 20150529
  Serious: Yes (Other)
  Sender: FDA-Public Use
  Company Number: CN-JNJFOC-20141017155

PATIENT
  Age: 22 Year
  Sex: Female
  Weight: 50 kg

DRUGS (1)
  1. TYLENOL COLD [Suspect]
     Active Substance: ACETAMINOPHEN\CHLORPHENIRAMINE MALEATE\PHENYLPROPANOLAMINE
     Indication: NASOPHARYNGITIS
     Route: 048
     Dates: start: 20140419, end: 20140419

REACTIONS (2)
  - Rash macular [Recovered/Resolved]
  - Pruritus generalised [Unknown]

NARRATIVE: CASE EVENT DATE: 20140419
